FAERS Safety Report 4607015-9 (Version None)
Quarter: 2005Q1

REPORT INFORMATION
  Report Type: 
  Country: None (occurrence: None)
  Receive Date: 20050309
  Receipt Date: 20050223
  Transmission Date: 20050727
  Serious: Yes (Life-Threatening, Hospitalization, Disabling, Other)
  Sender: FDA-Public Use
  Company Number: USA050291562

PATIENT
  Sex: Male
  Weight: 91 kg

DRUGS (2)
  1. HUMULIN N [Suspect]
     Indication: DIABETES MELLITUS
     Dosage: 10 U/2 DAY
  2. HUMULIN R [Suspect]
     Indication: DIABETES MELLITUS

REACTIONS (7)
  - AMNESIA [None]
  - BLINDNESS [None]
  - BLOOD GLUCOSE INCREASED [None]
  - DISTURBANCE IN ATTENTION [None]
  - MENTAL DISORDER DUE TO A GENERAL MEDICAL CONDITION [None]
  - MYOCARDIAL INFARCTION [None]
  - TREMOR [None]
